FAERS Safety Report 14567345 (Version 2)
Quarter: 2018Q4

REPORT INFORMATION
  Report Type: Spontaneous
  Country: US (occurrence: US)
  Receive Date: 20180223
  Receipt Date: 20181003
  Transmission Date: 20190204
  Serious: Yes (Other)
  Sender: FDA-Public Use
  Company Number: US-JNJFOC-20180212732

PATIENT

DRUGS (1)
  1. LEVAQUIN [Suspect]
     Active Substance: LEVOFLOXACIN
     Indication: PRODUCT USED FOR UNKNOWN INDICATION
     Route: 048
     Dates: start: 20160215, end: 20160325

REACTIONS (7)
  - Neuropathy peripheral [Unknown]
  - Cardiovascular disorder [Unknown]
  - Mental disorder [Unknown]
  - Hypoacusis [Unknown]
  - Skin disorder [Unknown]
  - Blindness [Unknown]
  - Musculoskeletal disorder [Unknown]

NARRATIVE: CASE EVENT DATE: 20160223
